FAERS Safety Report 17302417 (Version 1)
Quarter: 2020Q1

REPORT INFORMATION
  Report Type: Report from Study
  Country: GB (occurrence: GB)
  Receive Date: 20200122
  Receipt Date: 20200122
  Transmission Date: 20200409
  Serious: Yes (Other)
  Sender: FDA-Public Use
  Company Number: GB-MYLANLABS-2020M1006009

PATIENT
  Age: 53 Year
  Sex: Female

DRUGS (6)
  1. CLONAZEPAM. [Concomitant]
     Active Substance: CLONAZEPAM
     Indication: MUSCLE SPASMS
     Dosage: UNK UNK, PRN
  2. PREGABALIN. [Suspect]
     Active Substance: PREGABALIN
     Indication: SEDATION
  3. MAVENCLAD [Suspect]
     Active Substance: CLADRIBINE
     Indication: MULTIPLE SCLEROSIS
     Dosage: UNK (FIRST YEAR FIRST WEEK THERAPY: 2 TABLETS (10MG) ON DAY, 1 TABLET ON DAYS 2 TO 5)
     Route: 048
     Dates: start: 20181001
  4. AVAMYS [Concomitant]
     Active Substance: FLUTICASONE FUROATE
     Indication: PRODUCT USED FOR UNKNOWN INDICATION
     Dosage: UNK
  5. PREGABALIN. [Suspect]
     Active Substance: PREGABALIN
     Indication: NEUROPATHY PERIPHERAL
     Dosage: UNK
  6. MAVENCLAD [Suspect]
     Active Substance: CLADRIBINE
     Dosage: UNK (FIRST YEAR SECOND WEEK THERAPY: 2 TABLETS (EACH 10MG) ON DAY 1 AND 1 TABLET ON DAYS 2 TO 5)
     Route: 048
     Dates: start: 20181029

REACTIONS (14)
  - Neuropathy peripheral [Not Recovered/Not Resolved]
  - Blood pressure fluctuation [Not Recovered/Not Resolved]
  - Fatigue [Not Recovered/Not Resolved]
  - Stress [Unknown]
  - Multiple sclerosis [Not Recovered/Not Resolved]
  - Hangover [Unknown]
  - Balance disorder [Unknown]
  - Dizziness [Not Recovered/Not Resolved]
  - Sensory loss [Not Recovered/Not Resolved]
  - Fine motor skill dysfunction [Not Recovered/Not Resolved]
  - Uhthoff^s phenomenon [Not Recovered/Not Resolved]
  - Insomnia [Not Recovered/Not Resolved]
  - Weight decreased [Unknown]
  - Feeling abnormal [Not Recovered/Not Resolved]

NARRATIVE: CASE EVENT DATE: 201810
